FAERS Safety Report 25468775 (Version 3)
Quarter: 2025Q4

REPORT INFORMATION
  Report Type: Spontaneous
  Country: US (occurrence: US)
  Receive Date: 20250623
  Receipt Date: 20251229
  Transmission Date: 20260118
  Serious: Yes (Hospitalization, Other)
  Sender: SANOFI AVENTIS
  Company Number: US-SA-2025SA175487

PATIENT
  Age: 18 Year
  Sex: Female

DRUGS (1)
  1. REZUROCK [Suspect]
     Active Substance: BELUMOSUDIL
     Indication: Acute myeloid leukaemia (in remission)
     Dosage: 200 MG, QD
     Route: 048
     Dates: start: 20241211

REACTIONS (8)
  - Pneumonia [Unknown]
  - Abdominal operation [Unknown]
  - Dyspepsia [Unknown]
  - Chest pain [Unknown]
  - Paraesthesia [Unknown]
  - Petechiae [Unknown]
  - Contusion [Unknown]
  - Product use in unapproved indication [Unknown]

NARRATIVE: CASE EVENT DATE: 20241211
